FAERS Safety Report 23306746 (Version 1)
Quarter: 2023Q4

REPORT INFORMATION
  Report Type: Spontaneous
  Country: US (occurrence: US)
  Receive Date: 20231218
  Receipt Date: 20231218
  Transmission Date: 20240110
  Serious: No
  Sender: FDA-Public Use
  Company Number: US-RECKITT BENCKISER HEALTHCARE INT LIMITED-RB-104980-2023

PATIENT
  Age: 15 Year
  Sex: Male
  Weight: 83.18 kg

DRUGS (1)
  1. DELSYM [Suspect]
     Active Substance: DEXTROMETHORPHAN
     Indication: Product used for unknown indication
     Dosage: 1 DOSAGE FORM, SINGLE
     Route: 048
     Dates: start: 20230820

REACTIONS (2)
  - Eye swelling [Recovered/Resolved]
  - Lip swelling [Recovered/Resolved]
